FAERS Safety Report 5442727-9 (Version None)
Quarter: 2007Q3

REPORT INFORMATION
  Report Type: 
  Country: None (occurrence: None)
  Receive Date: 20070904
  Receipt Date: 20070830
  Transmission Date: 20080115
  Serious: Yes (Hospitalization)
  Sender: FDA-Public Use
  Company Number: US-BOEHRINGER INGELHEIM PHARMACEUTICALS, INC.-2007-BP-20170BP

PATIENT
  Sex: Male

DRUGS (14)
  1. SPIRIVA [Suspect]
     Indication: CHRONIC OBSTRUCTIVE PULMONARY DISEASE
     Route: 055
     Dates: start: 20040801
  2. ACTOS [Concomitant]
     Indication: DIABETES MELLITUS
  3. GLIPIZIDE [Concomitant]
     Indication: DIABETES MELLITUS
  4. LANTUS [Concomitant]
     Indication: DIABETES MELLITUS
  5. FUROSEMIDE [Concomitant]
     Indication: FLUID RETENTION
  6. VYTORIN [Concomitant]
     Indication: BLOOD CHOLESTEROL INCREASED
  7. DIOVAN [Concomitant]
     Indication: HYPERTENSION
  8. ALPRAZOLAM [Concomitant]
     Indication: ANXIETY
  9. EFFEXOR [Concomitant]
     Indication: DEPRESSION
  10. ISOSORBIDE DINITRATE [Concomitant]
     Indication: CARDIAC DISORDER
  11. NITROGLYCERIN [Concomitant]
     Indication: CARDIAC DISORDER
  12. SOTALOL HYDROCHLORIDE [Concomitant]
     Indication: CARDIAC DISORDER
  13. COUMADIN [Concomitant]
     Indication: ANTICOAGULANT THERAPY
     Route: 048
  14. COUMADIN [Concomitant]

REACTIONS (7)
  - BACK PAIN [None]
  - BLOOD GLUCOSE DECREASED [None]
  - HEAD DISCOMFORT [None]
  - HEAD INJURY [None]
  - NECK INJURY [None]
  - NECK PAIN [None]
  - SYNCOPE [None]
